FAERS Safety Report 8432991-6 (Version None)
Quarter: 2012Q2

REPORT INFORMATION
  Report Type: 
  Country: None (occurrence: None)
  Receive Date: 20120323
  Receipt Date: 20111006
  Transmission Date: 20120825
  Serious: Yes (Hospitalization, Other)
  Sender: FDA-Public Use
  Company Number: 163-21880-11072100

PATIENT
  Age: 64 Year
  Sex: Female
  Weight: 72.5755 kg

DRUGS (12)
  1. DECADRON [Concomitant]
  2. HYDRALAZINE HCL [Concomitant]
  3. DIFLUCAN [Concomitant]
  4. POTASSIUM CHLORIDE [Concomitant]
  5. REVLIMID [Suspect]
     Indication: MULTIPLE MYELOMA
     Dosage: 25 MG, DAILY X 21 DAYS, PO
     Route: 048
     Dates: start: 20110710, end: 20110715
  6. PANTOPRAZOLE [Concomitant]
  7. FLEXERIL [Concomitant]
  8. ACETAMINOPHEN [Concomitant]
  9. NEXIUM [Concomitant]
  10. ALLOPURINOL [Concomitant]
  11. ASPIRIN [Concomitant]
  12. MICARDIS [Concomitant]

REACTIONS (14)
  - GASTRITIS [None]
  - THROAT TIGHTNESS [None]
  - INFLUENZA LIKE ILLNESS [None]
  - DYSPNOEA [None]
  - VOMITING [None]
  - NAUSEA [None]
  - RENAL FAILURE ACUTE [None]
  - PALPITATIONS [None]
  - GASTROINTESTINAL HAEMORRHAGE [None]
  - MALAISE [None]
  - HAEMOGLOBIN DECREASED [None]
  - HAEMATOCRIT DECREASED [None]
  - ASTHENIA [None]
  - SOMNOLENCE [None]
